FAERS Safety Report 16244343 (Version 1)
Quarter: 2019Q2

REPORT INFORMATION
  Report Type: Report from Study
  Country: US (occurrence: US)
  Receive Date: 20190426
  Receipt Date: 20190426
  Transmission Date: 20190711
  Serious: Yes (Hospitalization, Other)
  Sender: FDA-Public Use
  Company Number: US-BAYER-2019-000902

PATIENT
  Age: 62 Year
  Sex: Female

DRUGS (3)
  1. NEXAVAR [Suspect]
     Active Substance: SORAFENIB
     Indication: HEPATOCELLULAR CARCINOMA
     Dosage: 400 MG, BID
     Route: 048
     Dates: start: 20181230, end: 20190102
  2. NEXAVAR [Suspect]
     Active Substance: SORAFENIB
     Indication: HEPATOCELLULAR CARCINOMA
     Dosage: 200 MG, BID
     Route: 048
     Dates: start: 20190103, end: 20190213
  3. NEXAVAR [Suspect]
     Active Substance: SORAFENIB
     Indication: HEPATOCELLULAR CARCINOMA
     Dosage: 200 MG DAILY
     Route: 048
     Dates: start: 20190301

REACTIONS (37)
  - Blister [None]
  - Hospitalisation [None]
  - Decreased appetite [Recovered/Resolved]
  - White blood cell count decreased [None]
  - Neck pain [Not Recovered/Not Resolved]
  - Diarrhoea [Recovering/Resolving]
  - Decreased appetite [Recovering/Resolving]
  - Cancer pain [Not Recovered/Not Resolved]
  - Neoplasm [None]
  - Visual impairment [Recovered/Resolved]
  - Fatigue [None]
  - Early satiety [None]
  - Nausea [None]
  - Diarrhoea [Recovered/Resolved]
  - Diarrhoea [None]
  - Abdominal pain upper [None]
  - Nausea [Recovering/Resolving]
  - Pain in extremity [Recovered/Resolved]
  - Acne [Recovering/Resolving]
  - Pain [Recovered/Resolved]
  - Nausea [None]
  - Insomnia [None]
  - Pancreatic carcinoma [None]
  - Musculoskeletal pain [Recovered/Resolved]
  - Blood urine present [Recovering/Resolving]
  - Abdominal pain upper [Recovering/Resolving]
  - Weight decreased [None]
  - Skin lesion [None]
  - Skin reaction [None]
  - Headache [Recovered/Resolved]
  - Vomiting [Recovering/Resolving]
  - Lip blister [None]
  - Oral disorder [None]
  - Abdominal pain upper [None]
  - Alopecia [None]
  - Furuncle [Recovered/Resolved]
  - Decreased appetite [None]

NARRATIVE: CASE EVENT DATE: 201903
